FAERS Safety Report 4367045-1 (Version None)
Quarter: 2004Q2

REPORT INFORMATION
  Report Type: 
  Country: None (occurrence: None)
  Receive Date: 20040528
  Receipt Date: 20011113
  Transmission Date: 20050107
  Serious: Yes (Disabling)
  Sender: FDA-Public Use
  Company Number: 2001SUS0978

PATIENT
  Age: 45 Year
  Sex: Male
  Weight: 74 kg

DRUGS (6)
  1. SUSTIVA [Suspect]
     Indication: HIV INFECTION
     Route: 048
     Dates: start: 20011003
  2. VIDEX [Suspect]
     Indication: HIV INFECTION
     Route: 048
     Dates: start: 20011003
  3. ZERIT [Suspect]
     Indication: HIV INFECTION
     Route: 048
     Dates: start: 19970204, end: 20011003
  4. FTC [Suspect]
     Indication: HIV INFECTION
     Route: 048
     Dates: start: 20011003
  5. CRIXIVAN [Suspect]
     Indication: HIV INFECTION
     Dosage: INTERRUPTED FROM JUL-1998 TO 15-SEP-1998
     Route: 048
     Dates: start: 19970201, end: 20011003
  6. EPIVIR [Suspect]
     Indication: HIV INFECTION
     Route: 048
     Dates: start: 19970201, end: 20011003

REACTIONS (4)
  - MACULOPATHY [None]
  - MYCOBACTERIAL INFECTION [None]
  - OPTIC NEUROPATHY [None]
  - VISUAL ACUITY REDUCED [None]
